FAERS Safety Report 16051894 (Version 2)
Quarter: 2019Q1

REPORT INFORMATION
  Report Type: Spontaneous
  Country: JP (occurrence: JP)
  Receive Date: 20190308
  Receipt Date: 20190326
  Transmission Date: 20190418
  Serious: Yes (Other)
  Sender: FDA-Public Use
  Company Number: JP-ELI_LILLY_AND_COMPANY-JP201902014383

PATIENT
  Sex: Male

DRUGS (2)
  1. ZALUTIA [Suspect]
     Active Substance: TADALAFIL
     Indication: BENIGN PROSTATIC HYPERPLASIA
     Dosage: 5 MG, DAILY
     Route: 048
  2. DOXORUBICIN [Concomitant]
     Active Substance: DOXORUBICIN

REACTIONS (1)
  - Soft tissue sarcoma [Unknown]

NARRATIVE: CASE EVENT DATE: 2016
